FAERS Safety Report 8465522-5 (Version None)
Quarter: 2012Q2

REPORT INFORMATION
  Report Type: 
  Country: None (occurrence: None)
  Receive Date: 20120626
  Receipt Date: 20120619
  Transmission Date: 20120825
  Serious: Yes (Hospitalization)
  Sender: FDA-Public Use
  Company Number: US-BAYER-2012-062071

PATIENT
  Age: 31 Year
  Sex: Female
  Weight: 100.68 kg

DRUGS (2)
  1. YASMIN [Suspect]
  2. YAZ [Suspect]
     Dosage: UNK

REACTIONS (1)
  - DEEP VEIN THROMBOSIS [None]
